FAERS Safety Report 10663425 (Version 1)
Quarter: 2014Q4

REPORT INFORMATION
  Report Type: Report from Study
  Country: CO (occurrence: CO)
  Receive Date: 20141218
  Receipt Date: 20141218
  Transmission Date: 20150529
  Serious: Yes (Hospitalization)
  Sender: FDA-Public Use
  Company Number: CO-ABBVIE-14K-036-1322311-00

PATIENT
  Age: 84 Year
  Sex: Male
  Weight: 75 kg

DRUGS (1)
  1. HUMIRA [Suspect]
     Active Substance: ADALIMUMAB
     Indication: RHEUMATOID ARTHRITIS
     Route: 058
     Dates: start: 20081201, end: 20141126

REACTIONS (2)
  - Anaemia [Recovering/Resolving]
  - Infection [Recovering/Resolving]

NARRATIVE: CASE EVENT DATE: 20141206
